FAERS Safety Report 23833220 (Version 3)
Quarter: 2024Q2

REPORT INFORMATION
  Report Type: Report from Study
  Country: PH (occurrence: PH)
  Receive Date: 20240508
  Receipt Date: 20240522
  Transmission Date: 20240716
  Serious: Yes (Death)
  Sender: FDA-Public Use
  Company Number: PH-OTSUKA-2024_009934

PATIENT
  Sex: Female

DRUGS (2)
  1. TOLVAPTAN [Suspect]
     Active Substance: TOLVAPTAN
     Indication: Generalised oedema
     Dosage: 0.5 DF, QD (15MG 1/2 TABLET EVERY DAY)
     Route: 048
  2. FUROSEMIDE [Concomitant]
     Active Substance: FUROSEMIDE
     Indication: Diuretic therapy
     Dosage: UNK
     Route: 065

REACTIONS (3)
  - Cardiac failure chronic [Fatal]
  - Underdose [Unknown]
  - Wrong technique in product usage process [Unknown]
